FAERS Safety Report 11717290 (Version 6)
Quarter: 2016Q1

REPORT INFORMATION
  Report Type: Report from Study
  Country: CA (occurrence: CA)
  Receive Date: 20151109
  Receipt Date: 20160321
  Transmission Date: 20160525
  Serious: Yes (Death, Life-Threatening, Hospitalization, Other)
  Sender: FDA-Public Use
  Company Number: CA-ROCHE-1630255

PATIENT
  Age: 78 Year
  Sex: Female

DRUGS (14)
  1. ACTEMRA [Suspect]
     Active Substance: TOCILIZUMAB
     Indication: RHEUMATOID ARTHRITIS
     Route: 042
     Dates: start: 20150805
  2. DILAUDID [Concomitant]
     Active Substance: HYDROMORPHONE HYDROCHLORIDE
     Route: 058
  3. ACTEMRA [Suspect]
     Active Substance: TOCILIZUMAB
     Route: 042
     Dates: start: 20150915
  4. ACTEMRA [Suspect]
     Active Substance: TOCILIZUMAB
     Route: 042
     Dates: start: 20151209
  5. PLAQUENIL [Concomitant]
     Active Substance: HYDROXYCHLOROQUINE SULFATE
  6. ACTEMRA [Suspect]
     Active Substance: TOCILIZUMAB
     Route: 042
     Dates: start: 20151014
  7. NORVASC [Concomitant]
     Active Substance: AMLODIPINE BESYLATE
  8. ACTEMRA [Suspect]
     Active Substance: TOCILIZUMAB
     Route: 042
     Dates: start: 20160120
  9. DIAMICRON [Concomitant]
     Active Substance: GLICLAZIDE
  10. AMLODIPINE [Concomitant]
     Active Substance: AMLODIPINE BESYLATE
  11. PREDNISONE. [Suspect]
     Active Substance: PREDNISONE
     Indication: PRODUCT USED FOR UNKNOWN INDICATION
     Route: 048
  12. VALSARTAN. [Concomitant]
     Active Substance: VALSARTAN
  13. RABEPRAZOLE [Concomitant]
     Active Substance: RABEPRAZOLE
  14. METFORMIN [Concomitant]
     Active Substance: METFORMIN HYDROCHLORIDE

REACTIONS (30)
  - Hyponatraemia [Unknown]
  - Hypovolaemia [Unknown]
  - Urine output decreased [Unknown]
  - Haemoglobin decreased [Unknown]
  - Platelet count increased [Unknown]
  - Protein total decreased [Unknown]
  - Terminal state [Unknown]
  - Blood alkaline phosphatase increased [Unknown]
  - Scab [Not Recovered/Not Resolved]
  - Neutrophil toxic granulation present [Unknown]
  - Gastric infection [Not Recovered/Not Resolved]
  - Rheumatoid arthritis [Unknown]
  - Blood chloride decreased [Unknown]
  - Blood potassium increased [Unknown]
  - Neutrophilia [Unknown]
  - Sepsis [Fatal]
  - Localised infection [Fatal]
  - Musculoskeletal pain [Unknown]
  - Electrocardiogram T wave inversion [Unknown]
  - Malaise [Unknown]
  - White blood cell count increased [Unknown]
  - Blood albumin decreased [Unknown]
  - Abdominal distension [Unknown]
  - Cellulitis [Unknown]
  - Dehydration [Unknown]
  - Alanine aminotransferase increased [Unknown]
  - Body temperature fluctuation [Unknown]
  - Hypokalaemia [Unknown]
  - Blood glucose abnormal [Not Recovered/Not Resolved]
  - Blood pressure diastolic increased [Unknown]

NARRATIVE: CASE EVENT DATE: 20160120
